FAERS Safety Report 5453538-2 (Version None)
Quarter: 2007Q3

REPORT INFORMATION
  Report Type: 
  Country: None (occurrence: None)
  Receive Date: 20070913
  Receipt Date: 20070905
  Transmission Date: 20080115
  Serious: Yes (Death, Hospitalization)
  Sender: FDA-Public Use
  Company Number: WAES 0709USA00611

PATIENT
  Age: 51 Year
  Sex: Male

DRUGS (21)
  1. DECADRON [Suspect]
     Indication: NON-SMALL CELL LUNG CANCER
     Dosage: 20 MG/PO, 128 MG/DAILY/PO
     Route: 048
     Dates: start: 20070726, end: 20070726
  2. DECADRON [Suspect]
     Indication: NON-SMALL CELL LUNG CANCER
     Dosage: 20 MG/PO, 128 MG/DAILY/PO
     Route: 048
     Dates: start: 20070509
  3. CETUXIMAB [Suspect]
     Indication: NON-SMALL CELL LUNG CANCER
     Dosage: 475 MG/IV, 475 MG/IV
     Route: 042
     Dates: start: 20070510, end: 20070510
  4. CETUXIMAB [Suspect]
     Indication: NON-SMALL CELL LUNG CANCER
     Dosage: 475 MG/IV, 475 MG/IV
     Route: 042
     Dates: start: 20070726, end: 20070726
  5. DOCETAXEL [Suspect]
     Indication: NON-SMALL CELL LUNG CANCER
     Dosage: 57 MG/IV, 57 MG/IV
     Route: 042
     Dates: start: 20070510, end: 20070510
  6. DOCETAXEL [Suspect]
     Indication: NON-SMALL CELL LUNG CANCER
     Dosage: 57 MG/IV, 57 MG/IV
     Route: 042
     Dates: start: 20070719, end: 20070719
  7. GEMCITABINE HCL [Suspect]
     Indication: NON-SMALL CELL LUNG CANCER
     Dosage: 1900 MG/IV, 1900 MG/IV
     Route: 042
     Dates: start: 20070510, end: 20070510
  8. GEMCITABINE HCL [Suspect]
     Indication: NON-SMALL CELL LUNG CANCER
     Dosage: 1900 MG/IV, 1900 MG/IV
     Route: 042
     Dates: start: 20070719, end: 20070719
  9. ALLEGRA D 24 HOUR [Concomitant]
  10. ALOXI [Concomitant]
  11. ATIVAN [Concomitant]
  12. BENADRYL [Concomitant]
  13. CHANTIX [Concomitant]
  14. COMPAZINE [Concomitant]
  15. DARVOCET [Concomitant]
  16. NEURONTIN [Concomitant]
  17. PERCOCET [Concomitant]
  18. VERSED [Concomitant]
  19. WELLBUTRIN [Concomitant]
  20. ZANTAC [Concomitant]
  21. ACETAMINOPHEN [Concomitant]

REACTIONS (14)
  - AGITATION [None]
  - BACTERAEMIA [None]
  - DIFFUSE ALVEOLAR DAMAGE [None]
  - DRUG TOXICITY [None]
  - DUODENAL ULCER PERFORATION [None]
  - FLUID OVERLOAD [None]
  - HYPOTENSION [None]
  - INTERSTITIAL LUNG DISEASE [None]
  - KLEBSIELLA INFECTION [None]
  - PNEUMONIA [None]
  - POST PROCEDURAL COMPLICATION [None]
  - RESPIRATORY ARREST [None]
  - RESPIRATORY FAILURE [None]
  - SPUTUM CULTURE POSITIVE [None]
